FAERS Safety Report 4324819-0 (Version None)
Quarter: 2004Q1

REPORT INFORMATION
  Report Type: 
  Country: None (occurrence: None)
  Receive Date: 20040323
  Receipt Date: 20040310
  Transmission Date: 20041129
  Serious: Yes (Other)
  Sender: FDA-Public Use
  Company Number: 2004-01007

PATIENT
  Age: 62 Year
  Sex: Female
  Weight: 61 kg

DRUGS (13)
  1. BACLOFEN [Suspect]
     Indication: STIFF-MAN SYNDROME
     Dosage: 12.5 MG, BID, ORAL
     Route: 048
  2. ISOFLURANE [Suspect]
     Indication: ANAESTHESIA
     Dosage: 0.6 TO 1.0 VOL%, OTHER
     Route: 050
  3. PREDNISONE [Concomitant]
  4. DIAZEPAM [Concomitant]
  5. LEVOTHYROXINE SODIUM [Concomitant]
  6. VITAMIN B12 INJECTION [Concomitant]
  7. PROPOFOL [Concomitant]
  8. SUFENTANIL CITRATE [Concomitant]
  9. CEFUROXIME [Concomitant]
  10. CLINDAMYCIN HCL [Concomitant]
  11. DEXAMETHASONE [Concomitant]
  12. ATRACURIUM BESYLATE [Concomitant]
  13. MORPHINE [Concomitant]

REACTIONS (4)
  - ANAESTHETIC COMPLICATION [None]
  - DRUG INTERACTION [None]
  - HYPOTONIA [None]
  - MUSCULAR WEAKNESS [None]
